FAERS Safety Report 9701670 (Version 1)
Quarter: 2013Q4

REPORT INFORMATION
  Report Type: Spontaneous
  Country: US (occurrence: US)
  Receive Date: 20131119
  Receipt Date: 20131119
  Transmission Date: 20140711
  Serious: No
  Sender: FDA-Public Use
  Company Number: -SAVIENT-2012S1000121

PATIENT
  Sex: 0

DRUGS (1)
  1. KRYSTEXXA [Suspect]
     Indication: PRODUCT USED FOR UNKNOWN INDICATION

REACTIONS (3)
  - Oedema peripheral [Unknown]
  - Thrombocytopenia [Unknown]
  - Inappropriate schedule of drug administration [Not Recovered/Not Resolved]
